FAERS Safety Report 13865178 (Version 1)
Quarter: 2017Q3

REPORT INFORMATION
  Report Type: Spontaneous
  Country: US (occurrence: US)
  Receive Date: 20170814
  Receipt Date: 20170814
  Transmission Date: 20171127
  Serious: Yes (Death, Hospitalization)
  Sender: FDA-Public Use
  Company Number: US-BAYER-2017-149524

PATIENT
  Age: 89 Year
  Sex: Male

DRUGS (3)
  1. TICAGRELOR. [Interacting]
     Active Substance: TICAGRELOR
     Dosage: UNK
  2. BAYER ASPIRIN [Suspect]
     Active Substance: ASPIRIN
     Dosage: UNK
  3. APIXABAN [Interacting]
     Active Substance: APIXABAN
     Dosage: 5 MG, BID

REACTIONS (4)
  - Stent-graft endoleak [Unknown]
  - Drug administration error [Unknown]
  - Myocardial infarction [Fatal]
  - Labelled drug-drug interaction medication error [Unknown]
